FAERS Safety Report 25703800 (Version 1)
Quarter: 2025Q3

REPORT INFORMATION
  Report Type: Spontaneous
  Country: US (occurrence: US)
  Receive Date: 20250820
  Receipt Date: 20250820
  Transmission Date: 20251020
  Serious: Yes (Other)
  Sender: ROCHE
  Company Number: US-ROCHE-10000364642

PATIENT
  Sex: Male

DRUGS (2)
  1. XOLAIR PFS [Suspect]
     Active Substance: OMALIZUMAB
     Indication: Urticaria
     Route: 058
     Dates: start: 202312
  2. XOLAIR PFS [Suspect]
     Active Substance: OMALIZUMAB
     Indication: Food allergy

REACTIONS (2)
  - Urticaria [Unknown]
  - Anaphylactic reaction [Unknown]
